FAERS Safety Report 4515306-5 (Version None)
Quarter: 2004Q4

REPORT INFORMATION
  Report Type: 
  Country: None (occurrence: None)
  Receive Date: 20041201
  Receipt Date: 20040818
  Transmission Date: 20050328
  Serious: Yes (Other)
  Sender: FDA-Public Use
  Company Number: NL-BRISTOL-MYERS SQUIBB COMPANY-12674230

PATIENT
  Age: 44 Year
  Sex: Female

DRUGS (8)
  1. CISPLATIN [Suspect]
     Indication: OVARIAN CANCER
     Route: 042
     Dates: start: 20040326, end: 20040326
  2. PACLITAXEL [Suspect]
     Indication: OVARIAN CANCER
     Route: 042
     Dates: start: 20030326, end: 20040326
  3. DEXAMETHASONE [Suspect]
     Indication: PROPHYLAXIS OF NAUSEA AND VOMITING
     Route: 042
     Dates: start: 20040326, end: 20040409
  4. DEXAMETHASONE [Suspect]
     Indication: VOMITING
     Dosage: 27-MAR TO 29-MAR-04, 03-APR TO 05-APR-04, AND 10-APR TO 12-APR-04
     Route: 048
     Dates: start: 20040327, end: 20040412
  5. SODIUM CHLORIDE [Concomitant]
     Dates: start: 20040326
  6. PARIET [Concomitant]
     Indication: REFLUX OESOPHAGITIS
     Dates: start: 20040101
  7. ALUMINUM HYDROXIDE AND MAGNESIUM TRISILICATE [Concomitant]
     Indication: PROPHYLAXIS
     Dates: start: 20040426
  8. MAGNESIUM HYDROXIDE TAB [Concomitant]
     Indication: HYPOMAGNESAEMIA
     Dates: start: 20040225, end: 20040511

REACTIONS (3)
  - HYPERGLYCAEMIA [None]
  - NAUSEA [None]
  - VOMITING [None]
